FAERS Safety Report 8531279 (Version 8)
Quarter: 2012Q4

REPORT INFORMATION
  Report Type: Report from Study
  Country: JP (occurrence: JP)
  Receive Date: 20120426
  Receipt Date: 20120906
  Transmission Date: 20130627
  Serious: Yes (Hospitalization, Other)
  Sender: FDA-Public Use
  Company Number: JP-JNJFOC-20120409308

PATIENT
  Age: 75 Year
  Sex: Female
  Weight: 47 kg

DRUGS (9)
  1. SIMPONI [Suspect]
     Indication: RHEUMATOID ARTHRITIS
     Route: 058
     Dates: start: 20120306
  2. SIMPONI [Suspect]
     Indication: RHEUMATOID ARTHRITIS
     Route: 058
     Dates: start: 20111111, end: 20120209
  3. RIMATIL [Suspect]
     Indication: RHEUMATOID ARTHRITIS
     Route: 048
  4. HYPEN [Concomitant]
     Indication: RHEUMATOID ARTHRITIS
     Route: 048
     Dates: end: 20120406
  5. THYRADIN S [Concomitant]
     Indication: HYPOTHYROIDISM
     Route: 048
  6. BONOTEO [Concomitant]
     Indication: OSTEOPOROSIS
     Route: 048
  7. TAKEPRON [Concomitant]
     Indication: GASTRITIS
     Route: 048
  8. METHYCOBAL [Concomitant]
     Indication: NEUROPATHY PERIPHERAL
     Route: 048
  9. EDIROL [Concomitant]
     Indication: OSTEOPOROSIS
     Route: 048

REACTIONS (2)
  - Interstitial lung disease [Recovered/Resolved]
  - Skin ulcer [Recovered/Resolved]
